FAERS Safety Report 24593145 (Version 1)
Quarter: 2024Q4

REPORT INFORMATION
  Report Type: Spontaneous
  Country: US (occurrence: None)
  Receive Date: 20241107
  Receipt Date: 20241107
  Transmission Date: 20250115
  Serious: Yes (Other)
  Sender: Public
  Company Number: None

PATIENT
  Age: 70 Year
  Sex: Female
  Weight: 80 kg

DRUGS (1)
  1. OXYCODONE [Suspect]
     Active Substance: OXYCODONE
     Indication: Procedural pain
     Dosage: 10 MG/MG AT BEDTIME ORAL ?
     Route: 048
     Dates: start: 20241104, end: 20241105

REACTIONS (1)
  - Delirium [None]

NARRATIVE: CASE EVENT DATE: 20241105
